FAERS Safety Report 7439606-4 (Version None)
Quarter: 2011Q2

REPORT INFORMATION
  Report Type: 
  Country: None (occurrence: None)
  Receive Date: 20110427
  Receipt Date: 20101230
  Transmission Date: 20111010
  Serious: Yes (Hospitalization, Other)
  Sender: FDA-Public Use
  Company Number: US-BAYER-201033767NA

PATIENT
  Age: 34 Year
  Sex: Female
  Weight: 55.782 kg

DRUGS (12)
  1. YAZ [Suspect]
     Indication: PREMENSTRUAL SYNDROME
     Dosage: 1 TAB DAILY
     Route: 048
  2. YASMIN [Suspect]
     Indication: PRODUCT USED FOR UNKNOWN INDICATION
     Route: 048
  3. DROSPIRENONE AND ETHINYL ESTRADIOL [Suspect]
     Indication: PRODUCT USED FOR UNKNOWN INDICATION
     Route: 048
  4. AMOXICILLIN [Concomitant]
     Dosage: 875 MG, BID
     Route: 048
  5. TYLENOL W/ CODEINE NO. 3 [Concomitant]
     Dosage: 30-300MG, QID
     Dates: start: 20071210
  6. NAPROSYN [Concomitant]
     Indication: PAIN
     Dosage: 500 MG BID WITH FOOD, PRN PAIN
  7. AZITHROMYCIN [Concomitant]
     Dosage: 250 MG, UNK
  8. ALBUTEROL [Concomitant]
     Indication: ASTHMA
     Dosage: 20 ML QID, PRN
     Route: 055
  9. YAZ [Suspect]
  10. DIFLUCAN [Concomitant]
     Dosage: 150 MG, QD
  11. PREDNISONE [Concomitant]
     Dosage: 20 MG, TID
     Route: 048
  12. MEPROZINE [Concomitant]
     Dosage: 50MG / 25MG

REACTIONS (4)
  - PAIN [None]
  - CHOLELITHIASIS [None]
  - CHOLECYSTITIS CHRONIC [None]
  - INJURY [None]
